FAERS Safety Report 7873375-9 (Version None)
Quarter: 2011Q4

REPORT INFORMATION
  Report Type: 
  Country: None (occurrence: None)
  Receive Date: 20111030
  Receipt Date: 20110503
  Transmission Date: 20120403
  Serious: No
  Sender: FDA-Public Use
  Company Number: US-AMGEN-USASP2011022922

PATIENT
  Age: 48 Year
  Sex: Female
  Weight: 62.585 kg

DRUGS (6)
  1. PLAQUENIL [Concomitant]
     Dosage: 200 MG, UNK
     Route: 048
  2. ENBREL [Suspect]
     Indication: PRODUCT USED FOR UNKNOWN INDICATION
     Dosage: 50 MG, QWK
     Route: 058
  3. FOLIC ACID [Concomitant]
     Dosage: 1 MG, UNK
     Route: 048
  4. LOESTRIN FE 1/20 [Concomitant]
     Route: 048
  5. METHOTREXATE [Concomitant]
     Dosage: 2.5 MG, UNK
     Route: 048
  6. OSCAL 500 + D [Concomitant]
     Route: 048

REACTIONS (3)
  - INJECTION SITE WARMTH [None]
  - INJECTION SITE ERYTHEMA [None]
  - INJECTION SITE SWELLING [None]
